FAERS Safety Report 7572801-2 (Version None)
Quarter: 2011Q2

REPORT INFORMATION
  Report Type: 
  Country: None (occurrence: None)
  Receive Date: 20110627
  Receipt Date: 20110623
  Transmission Date: 20111010
  Serious: No
  Sender: FDA-Public Use
  Company Number: US-PFIZER INC-2011140859

PATIENT
  Sex: Female
  Weight: 92.971 kg

DRUGS (3)
  1. CHANTIX [Suspect]
     Indication: SMOKING CESSATION THERAPY
     Dosage: UNK
     Route: 048
     Dates: start: 20100101
  2. CHANTIX [Interacting]
     Dosage: 1 MG, 2X/DAY
     Route: 048
     Dates: start: 20110101
  3. AMLODIPINE BESYLATE [Interacting]
     Indication: HYPERTENSION
     Dosage: 2.5 MG, DAILY

REACTIONS (4)
  - DRUG INTERACTION [None]
  - WEIGHT DECREASED [None]
  - SENSATION OF HEAVINESS [None]
  - LETHARGY [None]
